FAERS Safety Report 12742509 (Version 2)
Quarter: 2016Q3

REPORT INFORMATION
  Report Type: Spontaneous
  Country: IT (occurrence: IT)
  Receive Date: 20160914
  Receipt Date: 20160916
  Transmission Date: 20161109
  Serious: Yes (Other)
  Sender: FDA-Public Use
  Company Number: IT-PFIZER INC-2016414542

PATIENT
  Sex: Female

DRUGS (10)
  1. KEPPRA [Concomitant]
     Active Substance: LEVETIRACETAM
     Dosage: UNK
  2. VIMPAT [Concomitant]
     Active Substance: LACOSAMIDE
     Dosage: UNK
  3. CLEXANE [Concomitant]
     Active Substance: ENOXAPARIN SODIUM
  4. MODURETIC 5-50 [Suspect]
     Active Substance: AMILORIDE HYDROCHLORIDE\HYDROCHLOROTHIAZIDE
     Indication: HYPERTENSION
     Dosage: 5 MG, DAILY
     Route: 048
     Dates: start: 20150101, end: 20160129
  5. MODURETIC 5-50 [Suspect]
     Active Substance: AMILORIDE HYDROCHLORIDE\HYDROCHLOROTHIAZIDE
     Indication: HYPERTENSION
  6. LUCEN [Concomitant]
     Active Substance: ESOMEPRAZOLE
     Dosage: UNK
  7. TRIATEC [Suspect]
     Active Substance: RAMIPRIL
     Indication: HYPERTENSION
  8. AMIODARONE [Concomitant]
     Active Substance: AMIODARONE
     Dosage: UNK
  9. TRIATEC [Suspect]
     Active Substance: RAMIPRIL
     Indication: HYPERTENSION
     Dosage: 10 MG, DAILY
     Route: 048
     Dates: start: 20150101, end: 20160129
  10. NORVASC [Concomitant]
     Active Substance: AMLODIPINE BESYLATE

REACTIONS (5)
  - Vomiting [Recovering/Resolving]
  - Cerebral haemorrhage [Unknown]
  - Coma [Unknown]
  - Faecaloma [Unknown]
  - Hyponatraemia [Recovering/Resolving]

NARRATIVE: CASE EVENT DATE: 20160123
